FAERS Safety Report 8586268-9 (Version None)
Quarter: 2012Q3

REPORT INFORMATION
  Report Type: 
  Country: None (occurrence: None)
  Receive Date: 20120730
  Receipt Date: 20120718
  Transmission Date: 20120928
  Serious: No
  Sender: FDA-Public Use
  Company Number: JP-1192215

PATIENT
  Age: 57 Year
  Sex: Female

DRUGS (1)
  1. TRAVATAN [Suspect]
     Dosage: OPHTHALMIC
     Route: 047

REACTIONS (2)
  - CYSTOID MACULAR OEDEMA [None]
  - VISUAL ACUITY REDUCED [None]
